FAERS Safety Report 9237949 (Version 1)
Quarter: 2013Q1

REPORT INFORMATION
  Report Type: Spontaneous
  Country: US (occurrence: None)
  Receive Date: 20121106
  Receipt Date: 20121106
  Transmission Date: 20140127
  Serious: No
  Sender: FDA-Public Use
  Company Number: 1000039107

PATIENT
  Age: 72 Year
  Sex: Male

DRUGS (4)
  1. DALIRESP [Suspect]
     Dates: start: 20120911, end: 201209
  2. ADVAIR (SERETIDE) (SERETIDE) [Concomitant]
  3. VENTOLIN(ALBUTEROL) (ALBUTEROL) [Concomitant]
  4. FLOMAX(TAMSULOSIN) (TAMSULOSIN) [Concomitant]

REACTIONS (8)
  - Abnormal behaviour [None]
  - Mood altered [None]
  - Nausea [None]
  - Vomiting [None]
  - Dry mouth [None]
  - Disturbance in attention [None]
  - Somnolence [None]
  - Insomnia [None]
